FAERS Safety Report 5589523-X (Version None)
Quarter: 2008Q1

REPORT INFORMATION
  Report Type: 
  Country: None (occurrence: None)
  Receive Date: 20080114
  Receipt Date: 20080107
  Transmission Date: 20080703
  Serious: Yes (Disabling, Other)
  Sender: FDA-Public Use
  Company Number: CA-AVENTIS-200810328GDDC

PATIENT
  Age: 1 Day
  Sex: Female

DRUGS (1)
  1. CLOMID [Suspect]
     Route: 064

REACTIONS (10)
  - BLINDNESS [None]
  - CEREBRAL PALSY [None]
  - CONVULSION [None]
  - DYSKINESIA [None]
  - EATING DISORDER [None]
  - FAECAL INCONTINENCE [None]
  - INSOMNIA [None]
  - JOINT DISLOCATION [None]
  - LUNG DISORDER [None]
  - PREMATURE LABOUR [None]
